FAERS Safety Report 4718738-5 (Version None)
Quarter: 2005Q3

REPORT INFORMATION
  Report Type: 
  Country: None (occurrence: None)
  Receive Date: 20050719
  Receipt Date: 20050701
  Transmission Date: 20060218
  Serious: Yes (Hospitalization)
  Sender: FDA-Public Use
  Company Number: 216015

PATIENT
  Age: 63 Year
  Sex: Female

DRUGS (3)
  1. AVASTIN [Suspect]
     Dosage: 15 MG/KG, Q3W, INTRAVENOUS
     Route: 042
     Dates: start: 20050513
  2. CISPLATIN [Suspect]
     Dosage: 30 MG/M2, Q3W, INTRAVENOUS
     Route: 042
     Dates: start: 20050513
  3. IRINOTECAN HCL [Suspect]
     Dosage: 65 MG/M2, Q3W, INTRAVENOUS
     Route: 042
     Dates: start: 20050513, end: 20050610

REACTIONS (14)
  - ABDOMINAL PAIN [None]
  - ANOREXIA [None]
  - ASTHENIA [None]
  - COLLAPSE OF LUNG [None]
  - DEHYDRATION [None]
  - DIARRHOEA [None]
  - DRUG TOXICITY [None]
  - FATIGUE [None]
  - LETHARGY [None]
  - MALAISE [None]
  - NAUSEA [None]
  - PLEURAL EFFUSION [None]
  - RESPIRATORY RATE INCREASED [None]
  - VOMITING [None]
